FAERS Safety Report 6262098-8 (Version None)
Quarter: 2009Q3

REPORT INFORMATION
  Report Type: 
  Country: None (occurrence: None)
  Receive Date: 20090709
  Receipt Date: 20090630
  Transmission Date: 20100115
  Serious: Yes (Other)
  Sender: FDA-Public Use
  Company Number: TW-JNJFOC-20090700437

PATIENT
  Age: 17 Year
  Sex: Male

DRUGS (4)
  1. RISPERIDONE [Suspect]
     Indication: SCHIZOPHRENIFORM DISORDER
     Route: 065
  2. OLANZAPINE [Suspect]
     Indication: SCHIZOPHRENIFORM DISORDER
     Route: 048
  3. OLANZAPINE [Suspect]
     Route: 030
  4. CLONAZEPAM [Concomitant]
     Route: 065

REACTIONS (5)
  - BRADYCARDIA [None]
  - DRUG INEFFECTIVE [None]
  - HYPOTENSION [None]
  - HYPOTHERMIA [None]
  - RHABDOMYOLYSIS [None]
